FAERS Safety Report 8457098-3 (Version None)
Quarter: 2012Q2

REPORT INFORMATION
  Report Type: 
  Country: None (occurrence: None)
  Receive Date: 20120615
  Receipt Date: 20120604
  Transmission Date: 20120825
  Serious: Yes (Hospitalization, Other)
  Sender: FDA-Public Use
  Company Number: 2012P1039582

PATIENT
  Age: 21 Year
  Sex: Female

DRUGS (6)
  1. PEG-ASPARAGINASE (NO PREF. NAME) [Suspect]
     Indication: ACUTE LYMPHOCYTIC LEUKAEMIA
  2. METHOTREXATE [Concomitant]
  3. PREDNISOLONE [Suspect]
     Indication: ACUTE LYMPHOCYTIC LEUKAEMIA
  4. LEUCOVORIN CALCIUM [Concomitant]
  5. VINCRISTINE [Concomitant]
  6. DAUNORUBICIN HCL [Concomitant]

REACTIONS (12)
  - ASTHENIA [None]
  - MALNUTRITION [None]
  - FATIGUE [None]
  - HEPATIC STEATOSIS [None]
  - PANCREATITIS [None]
  - CHOLANGITIS [None]
  - HYPERGLYCAEMIA [None]
  - HEPATOTOXICITY [None]
  - ACTIVITIES OF DAILY LIVING IMPAIRED [None]
  - HYPERBILIRUBINAEMIA [None]
  - CHOLELITHIASIS [None]
  - MOBILITY DECREASED [None]
